FAERS Safety Report 24855017 (Version 1)
Quarter: 2025Q1

REPORT INFORMATION
  Report Type: Spontaneous
  Country: US (occurrence: US)
  Receive Date: 20250117
  Receipt Date: 20250117
  Transmission Date: 20250408
  Serious: No
  Sender: CURRAX PHARMACEUTICALS
  Company Number: US-CURRAX PHARMACEUTICALS-2020-011729

PATIENT
  Age: 57 Year
  Sex: Male

DRUGS (2)
  1. CONTRAVE [Suspect]
     Active Substance: BUPROPION HYDROCHLORIDE\NALTREXONE HYDROCHLORIDE
     Indication: Complex regional pain syndrome
     Route: 048
     Dates: start: 2018, end: 2019
  2. CONTRAVE [Suspect]
     Active Substance: BUPROPION HYDROCHLORIDE\NALTREXONE HYDROCHLORIDE
     Route: 048
     Dates: start: 2019

REACTIONS (6)
  - Shoulder operation [Unknown]
  - Procedural pain [Unknown]
  - Off label use [Unknown]
  - Drug titration error [Unknown]
  - Contraindicated product prescribed [Unknown]
  - Intentional underdose [Unknown]

NARRATIVE: CASE EVENT DATE: 20180101
